FAERS Safety Report 4305965-4 (Version None)
Quarter: 2004Q1

REPORT INFORMATION
  Report Type: 
  Country: None (occurrence: None)
  Receive Date: 20040225
  Receipt Date: 20040210
  Transmission Date: 20041129
  Serious: Yes (Hospitalization)
  Sender: FDA-Public Use
  Company Number: 2004AP00780

PATIENT
  Age: 74 Year
  Sex: Female
  Weight: 56 kg

DRUGS (9)
  1. ANAPEINE [Suspect]
     Indication: EPIDURAL ANAESTHESIA
     Dosage: 96 MG DAILY ED
     Route: 008
     Dates: start: 20031028, end: 20031104
  2. ANAPEINE [Suspect]
     Indication: EPIDURAL ANAESTHESIA
     Dosage: 192 MG DAILY ED
     Route: 008
     Dates: start: 20031105, end: 20031114
  3. TRYPTANOL [Concomitant]
  4. ALPRAZOLAM [Concomitant]
  5. LOXONIN [Concomitant]
  6. CRAVIT [Concomitant]
  7. FLUMETHOLON [Concomitant]
  8. NEUROTROPIN [Concomitant]
  9. VOLTAREN [Concomitant]

REACTIONS (3)
  - DRUG EFFECT DECREASED [None]
  - ERYTHEMA [None]
  - PURPURA [None]
